FAERS Safety Report 5406686-7 (Version None)
Quarter: 2007Q3

REPORT INFORMATION
  Report Type: 
  Country: None (occurrence: None)
  Receive Date: 20070803
  Receipt Date: 20070803
  Transmission Date: 20080115
  Serious: Yes (Hospitalization)
  Sender: FDA-Public Use
  Company Number: None

PATIENT
  Sex: Male
  Weight: 31.2982 kg

DRUGS (3)
  1. FLUOROURACIL [Suspect]
     Indication: TONSIL CANCER
     Dosage: 600MG/M2 QD 5D
     Dates: start: 20070722, end: 20070727
  2. HYDREA [Suspect]
     Indication: TONSIL CANCER
     Dosage: 500 MG PO BID
     Route: 048
     Dates: start: 20070722, end: 20070727
  3. IRESSA [Suspect]
     Dosage: 500MG PO QD
     Route: 048
     Dates: start: 20070625

REACTIONS (2)
  - ABDOMINAL PAIN [None]
  - PYREXIA [None]
